FAERS Safety Report 6544444-0 (Version None)
Quarter: 2010Q1

REPORT INFORMATION
  Report Type: 
  Country: None (occurrence: None)
  Receive Date: 20100121
  Receipt Date: 20100108
  Transmission Date: 20100710
  Serious: Yes (Hospitalization, Other)
  Sender: FDA-Public Use
  Company Number: GB-RANBAXY-2009RR-29481

PATIENT
  Age: 60 Year
  Sex: Female

DRUGS (4)
  1. CODEINE SULFATE [Suspect]
     Indication: ANALGESIC THERAPY
     Dosage: UNK
     Route: 048
  2. PRADAXA [Suspect]
     Indication: THROMBOSIS PROPHYLAXIS
     Dosage: 220 MG, QD
     Route: 048
  3. LEVOTHYROXINE SODIUM [Suspect]
     Indication: THYROID DISORDER
     Dosage: 150 MG, QD
     Route: 048
  4. ACETAMINOPHEN [Suspect]
     Indication: ANALGESIC THERAPY
     Dosage: 1 G, QID
     Route: 048

REACTIONS (2)
  - BLISTER [None]
  - WOUND SECRETION [None]
